FAERS Safety Report 8350581-0 (Version None)
Quarter: 2012Q2

REPORT INFORMATION
  Report Type: 
  Country: None (occurrence: None)
  Receive Date: 20120510
  Receipt Date: 20120430
  Transmission Date: 20120825
  Serious: No
  Sender: FDA-Public Use
  Company Number: US-BAYER-2012-045328

PATIENT
  Age: 71 Year
  Sex: Female
  Weight: 69 kg

DRUGS (3)
  1. ATIVAN [Concomitant]
  2. PRAVASTATIN [Suspect]
     Dosage: UNK UNK, PRN
     Route: 048
     Dates: start: 20120424, end: 20120424
  3. NAPROXEN SODIUM [Suspect]
     Indication: ARTHRITIS
     Dosage: UNK UNK, PRN
     Route: 048
     Dates: start: 20120424

REACTIONS (1)
  - PAIN [None]
